FAERS Safety Report 22812664 (Version 48)
Quarter: 2025Q1

REPORT INFORMATION
  Report Type: Report from Study
  Country: AT (occurrence: AT)
  Receive Date: 20230811
  Receipt Date: 20250221
  Transmission Date: 20250409
  Serious: Yes (Hospitalization, Other)
  Sender: ABBVIE
  Company Number: AT-ABBVIE-5301290

PATIENT
  Age: 81 Year
  Sex: Male
  Weight: 102 kg

DRUGS (133)
  1. VENETOCLAX [Suspect]
     Active Substance: VENETOCLAX
     Indication: Acute myeloid leukaemia
     Route: 048
     Dates: start: 20230709, end: 20230710
  2. VENETOCLAX [Suspect]
     Active Substance: VENETOCLAX
     Indication: Acute myeloid leukaemia
     Route: 048
     Dates: start: 20240527, end: 20240602
  3. VENETOCLAX [Suspect]
     Active Substance: VENETOCLAX
     Indication: Acute myeloid leukaemia
     Route: 048
     Dates: start: 20230718, end: 20230718
  4. VENETOCLAX [Suspect]
     Active Substance: VENETOCLAX
     Indication: Acute myeloid leukaemia
     Route: 048
     Dates: start: 20230719, end: 20230808
  5. VENETOCLAX [Suspect]
     Active Substance: VENETOCLAX
     Indication: Acute myeloid leukaemia
     Route: 048
     Dates: start: 20230829, end: 20230910
  6. VENETOCLAX [Suspect]
     Active Substance: VENETOCLAX
     Indication: Acute myeloid leukaemia
     Route: 048
     Dates: start: 20231107, end: 20231113
  7. VENETOCLAX [Suspect]
     Active Substance: VENETOCLAX
     Indication: Acute myeloid leukaemia
     Route: 048
     Dates: start: 20231211, end: 20231217
  8. VENETOCLAX [Suspect]
     Active Substance: VENETOCLAX
     Indication: Acute myeloid leukaemia
     Route: 048
     Dates: start: 20240122, end: 20240128
  9. VENETOCLAX [Suspect]
     Active Substance: VENETOCLAX
     Indication: Acute myeloid leukaemia
     Route: 048
     Dates: start: 20240304, end: 20240310
  10. VENETOCLAX [Suspect]
     Active Substance: VENETOCLAX
     Indication: Acute myeloid leukaemia
     Route: 048
     Dates: start: 20240415, end: 20240422
  11. VENETOCLAX [Suspect]
     Active Substance: VENETOCLAX
     Indication: Acute myeloid leukaemia
     Route: 048
     Dates: start: 20230602, end: 20230604
  12. VENETOCLAX [Suspect]
     Active Substance: VENETOCLAX
     Indication: Acute myeloid leukaemia
     Route: 048
     Dates: start: 20230605, end: 20230615
  13. VENETOCLAX [Suspect]
     Active Substance: VENETOCLAX
     Indication: Acute myeloid leukaemia
     Route: 048
     Dates: start: 20230616, end: 20230706
  14. VENETOCLAX [Suspect]
     Active Substance: VENETOCLAX
     Indication: Acute myeloid leukaemia
     Route: 048
     Dates: start: 20240709, end: 20240715
  15. VENETOCLAX [Suspect]
     Active Substance: VENETOCLAX
     Indication: Acute myeloid leukaemia
     Route: 048
     Dates: start: 20240819, end: 20240825
  16. VENETOCLAX [Suspect]
     Active Substance: VENETOCLAX
     Indication: Acute myeloid leukaemia
     Route: 048
     Dates: start: 20240930, end: 20241006
  17. VENETOCLAX [Suspect]
     Active Substance: VENETOCLAX
     Indication: Acute myeloid leukaemia
     Route: 048
     Dates: start: 20241111, end: 20241117
  18. VENETOCLAX [Suspect]
     Active Substance: VENETOCLAX
     Indication: Acute myeloid leukaemia
     Route: 048
     Dates: start: 20230711, end: 20230717
  19. VENETOCLAX [Suspect]
     Active Substance: VENETOCLAX
     Indication: Acute myeloid leukaemia
     Route: 048
     Dates: start: 20230601, end: 20230601
  20. VENETOCLAX [Suspect]
     Active Substance: VENETOCLAX
     Indication: Acute myeloid leukaemia
     Route: 048
     Dates: start: 20230707, end: 20230708
  21. VENETOCLAX [Suspect]
     Active Substance: VENETOCLAX
     Indication: Acute myeloid leukaemia
     Route: 048
     Dates: start: 20240603, end: 20240708
  22. VENETOCLAX [Suspect]
     Active Substance: VENETOCLAX
     Indication: Acute myeloid leukaemia
     Route: 048
     Dates: start: 20230809, end: 20230828
  23. VENETOCLAX [Suspect]
     Active Substance: VENETOCLAX
     Indication: Acute myeloid leukaemia
     Route: 048
     Dates: start: 20230911, end: 20231106
  24. VENETOCLAX [Suspect]
     Active Substance: VENETOCLAX
     Indication: Acute myeloid leukaemia
     Route: 048
     Dates: start: 20231114, end: 20231210
  25. VENETOCLAX [Suspect]
     Active Substance: VENETOCLAX
     Indication: Acute myeloid leukaemia
     Route: 048
     Dates: start: 20231218, end: 20240121
  26. VENETOCLAX [Suspect]
     Active Substance: VENETOCLAX
     Indication: Acute myeloid leukaemia
     Route: 048
     Dates: start: 20240129, end: 20240303
  27. VENETOCLAX [Suspect]
     Active Substance: VENETOCLAX
     Indication: Acute myeloid leukaemia
     Route: 048
     Dates: start: 20240311, end: 20240414
  28. VENETOCLAX [Suspect]
     Active Substance: VENETOCLAX
     Indication: Acute myeloid leukaemia
     Route: 048
     Dates: start: 20240423, end: 20240526
  29. VENETOCLAX [Suspect]
     Active Substance: VENETOCLAX
     Indication: Acute myeloid leukaemia
     Route: 048
     Dates: start: 20241007, end: 20241110
  30. VENETOCLAX [Suspect]
     Active Substance: VENETOCLAX
     Indication: Acute myeloid leukaemia
     Route: 048
     Dates: start: 20240716, end: 20240818
  31. VENETOCLAX [Suspect]
     Active Substance: VENETOCLAX
     Indication: Acute myeloid leukaemia
     Route: 048
     Dates: start: 20240826, end: 20240929
  32. VENETOCLAX [Suspect]
     Active Substance: VENETOCLAX
     Indication: Acute myeloid leukaemia
     Route: 048
     Dates: start: 20241118, end: 20250101
  33. VENETOCLAX [Suspect]
     Active Substance: VENETOCLAX
     Indication: Acute myeloid leukaemia
     Route: 048
     Dates: start: 20250102, end: 20250109
  34. VENETOCLAX [Suspect]
     Active Substance: VENETOCLAX
     Indication: Acute myeloid leukaemia
     Route: 048
     Dates: start: 20250110, end: 20250212
  35. VENETOCLAX [Suspect]
     Active Substance: VENETOCLAX
     Indication: Acute myeloid leukaemia
     Route: 048
     Dates: start: 20250213
  36. BISOPROLOL FUMARATE [Concomitant]
     Active Substance: BISOPROLOL FUMARATE
     Indication: Hypertension
     Route: 048
     Dates: start: 2023, end: 20230603
  37. BISOPROLOL FUMARATE [Concomitant]
     Active Substance: BISOPROLOL FUMARATE
     Indication: Hypertension
     Dosage: 2.5 MG
     Route: 048
     Dates: start: 20230805
  38. BISOPROLOL FUMARATE [Concomitant]
     Active Substance: BISOPROLOL FUMARATE
     Indication: Hypertension
     Dosage: 2.5 MG
     Route: 048
     Dates: start: 20230604, end: 20230605
  39. HUMAN RED BLOOD CELL [Concomitant]
     Active Substance: HUMAN RED BLOOD CELL
     Indication: Product used for unknown indication
     Dates: start: 20240418, end: 20240418
  40. HUMAN RED BLOOD CELL [Concomitant]
     Active Substance: HUMAN RED BLOOD CELL
     Indication: Product used for unknown indication
     Dates: start: 20240608, end: 20240608
  41. HUMAN RED BLOOD CELL [Concomitant]
     Active Substance: HUMAN RED BLOOD CELL
     Indication: Product used for unknown indication
     Dates: start: 20240708, end: 20240708
  42. HUMAN RED BLOOD CELL [Concomitant]
     Active Substance: HUMAN RED BLOOD CELL
     Indication: Product used for unknown indication
     Dates: start: 20240823, end: 20240823
  43. HUMAN RED BLOOD CELL [Concomitant]
     Active Substance: HUMAN RED BLOOD CELL
     Indication: Product used for unknown indication
     Dates: start: 20241002
  44. HUMAN RED BLOOD CELL [Concomitant]
     Active Substance: HUMAN RED BLOOD CELL
     Indication: Product used for unknown indication
     Dates: start: 20250108, end: 20250108
  45. LASIX [Concomitant]
     Active Substance: FUROSEMIDE
     Indication: Adjuvant therapy
     Route: 048
     Dates: start: 20230608, end: 20230609
  46. LASIX [Concomitant]
     Active Substance: FUROSEMIDE
     Indication: Adjuvant therapy
     Route: 048
     Dates: end: 20240311
  47. PANTOPRAZOLE SODIUM [Concomitant]
     Active Substance: PANTOPRAZOLE SODIUM
     Indication: Prophylaxis
     Route: 048
  48. COMBIVENT [Concomitant]
     Active Substance: ALBUTEROL SULFATE\IPRATROPIUM BROMIDE
     Indication: Product used for unknown indication
     Dosage: COMBIVENT INH
     Route: 055
     Dates: start: 20240310, end: 20240319
  49. NEURONTIN [Concomitant]
     Active Substance: GABAPENTIN
     Indication: Polyneuropathy
     Route: 048
  50. FOLIC ACID [Concomitant]
     Active Substance: FOLIC ACID
     Indication: Product used for unknown indication
     Route: 048
     Dates: start: 20230531, end: 20230704
  51. FOLIC ACID [Concomitant]
     Active Substance: FOLIC ACID
     Indication: Product used for unknown indication
     Route: 048
     Dates: start: 20230705
  52. LEVOFLOXACIN [Concomitant]
     Active Substance: LEVOFLOXACIN
     Indication: Product used for unknown indication
     Route: 048
     Dates: start: 20230630, end: 20230804
  53. GRANULOCYTE COLONY-STIMULATING FACTOR NOS [Concomitant]
     Active Substance: GRANULOCYTE COLONY-STIMULATING FACTOR NOS
     Indication: Product used for unknown indication
     Dosage: AS REQUIRED
     Dates: start: 20230710, end: 20230711
  54. GRANULOCYTE COLONY-STIMULATING FACTOR NOS [Concomitant]
     Active Substance: GRANULOCYTE COLONY-STIMULATING FACTOR NOS
     Indication: Product used for unknown indication
     Dosage: AS REQUIRED
     Dates: start: 20230829, end: 20230910
  55. GRANULOCYTE COLONY-STIMULATING FACTOR NOS [Concomitant]
     Active Substance: GRANULOCYTE COLONY-STIMULATING FACTOR NOS
     Indication: Product used for unknown indication
     Dates: start: 20230714, end: 20230715
  56. GRANULOCYTE COLONY-STIMULATING FACTOR NOS [Concomitant]
     Active Substance: GRANULOCYTE COLONY-STIMULATING FACTOR NOS
     Indication: Product used for unknown indication
     Dosage: AS REQUIRED
     Dates: start: 20230718, end: 20230803
  57. GRANULOCYTE COLONY-STIMULATING FACTOR NOS [Concomitant]
     Active Substance: GRANULOCYTE COLONY-STIMULATING FACTOR NOS
     Indication: Product used for unknown indication
     Dosage: AS REQUIRED
     Dates: start: 20230911, end: 20231106
  58. GRANULOCYTE COLONY-STIMULATING FACTOR NOS [Concomitant]
     Active Substance: GRANULOCYTE COLONY-STIMULATING FACTOR NOS
     Indication: Product used for unknown indication
     Dosage: AS REQUIRED
     Route: 042
     Dates: start: 20231121, end: 20231214
  59. GRANULOCYTE COLONY-STIMULATING FACTOR NOS [Concomitant]
     Active Substance: GRANULOCYTE COLONY-STIMULATING FACTOR NOS
     Indication: Product used for unknown indication
     Dates: start: 20240318
  60. AZACITIDINE [Concomitant]
     Active Substance: AZACITIDINE
     Indication: Product used for unknown indication
     Dates: start: 20240415, end: 20240422
  61. AZACITIDINE [Concomitant]
     Active Substance: AZACITIDINE
     Indication: Product used for unknown indication
     Dates: start: 20230829, end: 20230904
  62. AZACITIDINE [Concomitant]
     Active Substance: AZACITIDINE
     Indication: Product used for unknown indication
     Dates: start: 20230717, end: 20230723
  63. AZACITIDINE [Concomitant]
     Active Substance: AZACITIDINE
     Indication: Product used for unknown indication
     Dates: start: 20230601, end: 20230607
  64. AZACITIDINE [Concomitant]
     Active Substance: AZACITIDINE
     Indication: Product used for unknown indication
     Dates: start: 20231106, end: 20231112
  65. AZACITIDINE [Concomitant]
     Active Substance: AZACITIDINE
     Indication: Product used for unknown indication
     Route: 065
     Dates: start: 20231211, end: 20231217
  66. AZACITIDINE [Concomitant]
     Active Substance: AZACITIDINE
     Indication: Product used for unknown indication
     Dates: start: 20240122, end: 20240128
  67. AZACITIDINE [Concomitant]
     Active Substance: AZACITIDINE
     Indication: Product used for unknown indication
     Dates: start: 20240304, end: 20240310
  68. AZACITIDINE [Concomitant]
     Active Substance: AZACITIDINE
     Indication: Product used for unknown indication
     Dates: start: 20240527, end: 20240602
  69. AZACITIDINE [Concomitant]
     Active Substance: AZACITIDINE
     Indication: Product used for unknown indication
     Dates: start: 20240708, end: 20240714
  70. AZACITIDINE [Concomitant]
     Active Substance: AZACITIDINE
     Indication: Product used for unknown indication
     Dates: start: 20240819, end: 20240825
  71. AZACITIDINE [Concomitant]
     Active Substance: AZACITIDINE
     Indication: Product used for unknown indication
     Dates: start: 20240930, end: 20241006
  72. AZACITIDINE [Concomitant]
     Active Substance: AZACITIDINE
     Indication: Product used for unknown indication
     Dates: start: 20241111, end: 20241117
  73. AZACITIDINE [Concomitant]
     Active Substance: AZACITIDINE
     Indication: Product used for unknown indication
     Dates: start: 20250102, end: 20250109
  74. AZACITIDINE [Concomitant]
     Active Substance: AZACITIDINE
     Indication: Product used for unknown indication
     Dates: start: 20250213
  75. NOVORAPID [Concomitant]
     Active Substance: INSULIN ASPART
     Indication: Product used for unknown indication
     Route: 058
     Dates: start: 20230607, end: 20230703
  76. AROSUVA [Concomitant]
     Indication: Hypercholesterolaemia
     Route: 048
  77. TAMSULOSIN [Concomitant]
     Active Substance: TAMSULOSIN
     Indication: Benign prostatic hyperplasia
     Dosage: 0.4MG
     Route: 048
     Dates: end: 20240310
  78. TAMSULOSIN [Concomitant]
     Active Substance: TAMSULOSIN
     Indication: Benign prostatic hyperplasia
     Dosage: START DATE: 2024
     Route: 048
  79. ACETAMINOPHEN [Concomitant]
     Active Substance: ACETAMINOPHEN
     Indication: Product used for unknown indication
     Route: 042
     Dates: start: 20230623
  80. ACETAMINOPHEN [Concomitant]
     Active Substance: ACETAMINOPHEN
     Indication: Product used for unknown indication
     Route: 042
     Dates: start: 20240310, end: 20240318
  81. ACETAMINOPHEN [Concomitant]
     Active Substance: ACETAMINOPHEN
     Indication: Product used for unknown indication
     Route: 042
     Dates: start: 202403
  82. TOUJEO [Concomitant]
     Active Substance: INSULIN GLARGINE
     Indication: Type 2 diabetes mellitus
     Dosage: TOUEJO 300 IE, FORM STRENGTH: 300 IU (INTERNATIONAL UNIT)
     Route: 058
     Dates: start: 20230612
  83. PREDNISOLONE [Concomitant]
     Active Substance: PREDNISOLONE
     Indication: Product used for unknown indication
     Route: 048
     Dates: start: 20230608, end: 20230608
  84. PREDNISOLONE [Concomitant]
     Active Substance: PREDNISOLONE
     Indication: Product used for unknown indication
     Dosage: DOSE:12.5 MG
     Route: 048
     Dates: start: 20230609, end: 20230609
  85. PREDNISOLONE [Concomitant]
     Active Substance: PREDNISOLONE
     Indication: Product used for unknown indication
     Route: 048
     Dates: start: 20230602, end: 20230605
  86. PREDNISOLONE [Concomitant]
     Active Substance: PREDNISOLONE
     Indication: Product used for unknown indication
     Route: 048
     Dates: start: 20230530, end: 20230601
  87. PREDNISOLONE [Concomitant]
     Active Substance: PREDNISOLONE
     Indication: Product used for unknown indication
     Dosage: DOSE: 37.5 MG
     Route: 048
     Dates: start: 20230606, end: 20230607
  88. ONDANSETRON [Concomitant]
     Active Substance: ONDANSETRON
     Indication: Supportive care
     Dosage: FREQUENCY TEXT: DAILY
     Dates: start: 20240930, end: 20241006
  89. ONDANSETRON [Concomitant]
     Active Substance: ONDANSETRON
     Indication: Supportive care
     Dosage: FREQUENCY TEXT: DAILY
     Dates: start: 20241111, end: 20241117
  90. ONDANSETRON [Concomitant]
     Active Substance: ONDANSETRON
     Indication: Supportive care
     Dosage: FREQUENCY TEXT: DAILY
     Dates: start: 20240708, end: 20240714
  91. ONDANSETRON [Concomitant]
     Active Substance: ONDANSETRON
     Indication: Supportive care
     Dosage: FREQUENCY TEXT: DAILY
     Dates: start: 20240415, end: 20240422
  92. ONDANSETRON [Concomitant]
     Active Substance: ONDANSETRON
     Indication: Supportive care
     Dosage: FREQUENCY TEXT: DAILY
     Dates: start: 20240819, end: 20240825
  93. ONDANSETRON [Concomitant]
     Active Substance: ONDANSETRON
     Indication: Supportive care
     Dates: start: 20250102, end: 20250109
  94. ONDANSETRON [Concomitant]
     Active Substance: ONDANSETRON
     Indication: Supportive care
     Dates: start: 20240122, end: 20240128
  95. ONDANSETRON [Concomitant]
     Active Substance: ONDANSETRON
     Indication: Supportive care
     Dosage: FREQUENCY TEXT: DAILY
     Dates: start: 20240527, end: 20240602
  96. ONDANSETRON [Concomitant]
     Active Substance: ONDANSETRON
     Indication: Supportive care
     Dates: start: 20240527, end: 20240602
  97. ONDANSETRON [Concomitant]
     Active Substance: ONDANSETRON
     Indication: Supportive care
     Dates: start: 20240304, end: 20240310
  98. ASPIRIN [Concomitant]
     Active Substance: ASPIRIN
     Indication: Coronary artery disease
     Route: 048
     Dates: start: 20230630, end: 20230710
  99. ASPIRIN [Concomitant]
     Active Substance: ASPIRIN
     Indication: Coronary artery disease
     Route: 048
     Dates: start: 20230828, end: 20230910
  100. ASPIRIN [Concomitant]
     Active Substance: ASPIRIN
     Indication: Coronary artery disease
     Route: 048
     Dates: start: 20230926
  101. ASPIRIN [Concomitant]
     Active Substance: ASPIRIN
     Indication: Coronary artery disease
     Route: 048
     Dates: end: 20230610
  102. POLYETHYLENE GLYCOL 3350\POTASSIUM CHLORIDE\SODIUM BICARBONATE\SODIUM [Concomitant]
     Active Substance: POLYETHYLENE GLYCOL 3350\POTASSIUM CHLORIDE\SODIUM BICARBONATE\SODIUM CHLORIDE
     Indication: Constipation
     Route: 048
  103. RASBURICASE [Concomitant]
     Active Substance: RASBURICASE
     Indication: Supportive care
     Dosage: DOSE 7.5 MG
     Dates: start: 20230601, end: 20230601
  104. RASBURICASE [Concomitant]
     Active Substance: RASBURICASE
     Indication: Supportive care
     Dates: start: 20230601, end: 20230607
  105. ELOZELL SPEZIAL [Concomitant]
     Indication: Supportive care
     Dates: start: 20230614, end: 20230615
  106. CLOPIDOGREL [Concomitant]
     Active Substance: CLOPIDOGREL BISULFATE
     Indication: Coronary artery disease
     Route: 048
     Dates: start: 20231009
  107. CLOPIDOGREL [Concomitant]
     Active Substance: CLOPIDOGREL BISULFATE
     Indication: Coronary artery disease
     Route: 048
     Dates: start: 2023, end: 20230610
  108. CLOPIDOGREL [Concomitant]
     Active Substance: CLOPIDOGREL BISULFATE
     Indication: Coronary artery disease
     Route: 048
     Dates: start: 20230628, end: 20230905
  109. MYCOSTATIN [Concomitant]
     Active Substance: NYSTATIN
     Indication: Supportive care
     Dosage: MYCOSTATIN ORAL SUSP?FREQUENCY TEXT: DAILY
     Route: 048
     Dates: start: 20230606, end: 20230904
  110. ACYCLOVIR [Concomitant]
     Active Substance: ACYCLOVIR
     Indication: Supportive care
     Dates: start: 20230531, end: 20230613
  111. ACYCLOVIR [Concomitant]
     Active Substance: ACYCLOVIR
     Indication: Supportive care
     Dates: start: 20230805
  112. ACYCLOVIR [Concomitant]
     Active Substance: ACYCLOVIR
     Indication: Supportive care
     Route: 048
     Dates: start: 20240305
  113. ACYCLOVIR [Concomitant]
     Active Substance: ACYCLOVIR
     Indication: Supportive care
     Route: 048
  114. MEROPENEM [Concomitant]
     Active Substance: MEROPENEM
     Indication: Product used for unknown indication
     Route: 042
     Dates: start: 20230623, end: 20230629
  115. LOVENOX [Concomitant]
     Active Substance: ENOXAPARIN SODIUM
     Indication: Prophylaxis
     Route: 058
     Dates: start: 20240310, end: 20240318
  116. LOVENOX [Concomitant]
     Active Substance: ENOXAPARIN SODIUM
     Indication: Prophylaxis
     Route: 058
     Dates: start: 20231002, end: 20231008
  117. LOVENOX [Concomitant]
     Active Substance: ENOXAPARIN SODIUM
     Indication: Prophylaxis
     Dosage: FREQUENCY TEXT: DAILY
     Route: 058
     Dates: start: 20240930, end: 20241006
  118. LOVENOX [Concomitant]
     Active Substance: ENOXAPARIN SODIUM
     Indication: Prophylaxis
     Route: 058
     Dates: start: 20230930
  119. LEVOFLOXACIN [Concomitant]
     Active Substance: LEVOFLOXACIN
     Indication: Product used for unknown indication
     Route: 054
     Dates: start: 20230805, end: 20230816
  120. CASPOFUNGIN [Concomitant]
     Active Substance: CASPOFUNGIN
     Indication: Product used for unknown indication
     Route: 042
     Dates: start: 20230624, end: 20230629
  121. CASPOFUNGIN [Concomitant]
     Active Substance: CASPOFUNGIN
     Indication: Product used for unknown indication
     Route: 042
     Dates: start: 20230623, end: 20230623
  122. METRONIDAZOLE [Concomitant]
     Active Substance: METRONIDAZOLE
     Indication: Product used for unknown indication
     Route: 042
     Dates: start: 20230808, end: 20230817
  123. METRONIDAZOLE [Concomitant]
     Active Substance: METRONIDAZOLE
     Indication: Product used for unknown indication
     Route: 042
     Dates: start: 20230910, end: 20230922
  124. METRONIDAZOLE [Concomitant]
     Active Substance: METRONIDAZOLE
     Indication: Product used for unknown indication
     Route: 042
     Dates: start: 20231002, end: 20231009
  125. Lidaprim [Concomitant]
     Indication: Supportive care
     Dosage: LIDAPRIM FORTE
     Dates: start: 20230531, end: 20230802
  126. Lidaprim [Concomitant]
     Indication: Supportive care
     Dosage: FORTE
     Dates: start: 20230805, end: 20230910
  127. Lidaprim [Concomitant]
     Indication: Supportive care
     Dosage: LAST ADMIN TEXT: MAR 2024
     Route: 048
     Dates: start: 20240305
  128. Lidaprim [Concomitant]
     Indication: Supportive care
     Route: 048
     Dates: start: 2024
  129. CEFUROXIME [Concomitant]
     Active Substance: CEFUROXIME
     Indication: Product used for unknown indication
     Route: 042
     Dates: start: 20231002, end: 20231009
  130. DEXIBUPROFEN [Concomitant]
     Active Substance: DEXIBUPROFEN
     Indication: Product used for unknown indication
     Route: 048
     Dates: start: 20231008, end: 20231011
  131. FILGRASTIM [Concomitant]
     Active Substance: FILGRASTIM
     Indication: Neutropenia
     Route: 058
     Dates: start: 20240318
  132. FILGRASTIM [Concomitant]
     Active Substance: FILGRASTIM
     Indication: Neutropenia
     Route: 058
     Dates: end: 20240126
  133. APIDRA [Concomitant]
     Active Substance: INSULIN GLULISINE
     Indication: Type 2 diabetes mellitus
     Route: 058

REACTIONS (77)
  - Febrile neutropenia [Recovered/Resolved]
  - Blood creatinine increased [Not Recovered/Not Resolved]
  - Neutropenia [Recovered/Resolved]
  - Blood creatinine increased [Recovered/Resolved]
  - Infection [Recovered/Resolved]
  - Thrombocytopenia [Recovered/Resolved]
  - Thrombocytopenia [Recovered/Resolved]
  - Thrombocytopenia [Recovered/Resolved]
  - Vomiting [Recovered/Resolved]
  - Thrombocytopenia [Recovered/Resolved]
  - Thrombocytopenia [Recovered/Resolved]
  - Diarrhoea [Recovered/Resolved]
  - Neutropenia [Recovered/Resolved]
  - Neutropenia [Recovered/Resolved]
  - Neutropenia [Recovered/Resolved]
  - Thrombocytopenia [Recovered/Resolved]
  - Anaemia [Recovered/Resolved]
  - Appendicitis [Recovered/Resolved]
  - Anaemia [Recovered/Resolved]
  - Anaemia [Recovered/Resolved]
  - Leukopenia [Recovered/Resolved]
  - Anaemia [Recovered/Resolved]
  - Anaemia [Recovered/Resolved]
  - Pneumonia [Recovered/Resolved]
  - Anaemia [Recovered/Resolved]
  - Anaemia [Recovered/Resolved]
  - Anaemia [Recovered/Resolved]
  - Anaemia [Recovered/Resolved]
  - Anaemia [Recovered/Resolved]
  - Anaemia [Recovered/Resolved]
  - Anaemia [Recovered/Resolved]
  - Anaemia [Recovered/Resolved]
  - Anaemia [Recovered/Resolved]
  - Thrombocytopenia [Recovered/Resolved]
  - Thrombocytopenia [Recovered/Resolved]
  - Anaemia [Recovered/Resolved]
  - Anaemia [Recovered/Resolved]
  - Anaemia [Recovered/Resolved]
  - Pyrexia [Recovered/Resolved]
  - Blood creatinine increased [Recovered/Resolved]
  - Transaminases increased [Recovered/Resolved with Sequelae]
  - Blood creatinine increased [Recovered/Resolved]
  - Leukopenia [Recovered/Resolved]
  - Anaemia [Recovered/Resolved]
  - Blood creatinine increased [Recovered/Resolved]
  - Blood creatinine increased [Recovered/Resolved]
  - Blood creatinine increased [Recovered/Resolved]
  - Leukopenia [Recovered/Resolved]
  - Leukopenia [Recovered/Resolved]
  - Thrombocytopenia [Recovered/Resolved]
  - Febrile neutropenia [Recovered/Resolved]
  - Anaemia [Recovered/Resolved]
  - Neutropenia [Recovered/Resolved]
  - Appendicitis noninfective [Recovered/Resolved]
  - Thrombocytopenia [Recovered/Resolved]
  - Anaemia [Recovered/Resolved]
  - Leukocytosis [Recovered/Resolved]
  - Anaemia [Recovered/Resolved]
  - Hyperbilirubinaemia [Recovered/Resolved]
  - Transaminases increased [Recovered/Resolved]
  - Blood creatinine increased [Recovered/Resolved]
  - Leukopenia [Recovered/Resolved]
  - Blood creatinine increased [Recovered/Resolved]
  - Anaemia [Recovered/Resolved]
  - Anaemia [Recovered/Resolved]
  - Anaemia [Recovered/Resolved]
  - Leukopenia [Recovered/Resolved]
  - Anaemia [Recovered/Resolved]
  - Anaemia [Recovered/Resolved]
  - Leukopenia [Recovered/Resolved]
  - Anaemia [Recovered/Resolved]
  - Leukopenia [Recovered/Resolved]
  - Anaemia [Recovered/Resolved]
  - C-reactive protein increased [Unknown]
  - Anaemia [Not Recovered/Not Resolved]
  - Neutrophil count increased [Recovered/Resolved]
  - Anaemia [Recovered/Resolved]

NARRATIVE: CASE EVENT DATE: 20230602
